FAERS Safety Report 25596852 (Version 1)
Quarter: 2025Q3

REPORT INFORMATION
  Report Type: Report from Study
  Country: US (occurrence: US)
  Receive Date: 20250723
  Receipt Date: 20250723
  Transmission Date: 20251021
  Serious: Yes (Hospitalization)
  Sender: ABBVIE
  Company Number: US-ABBVIE-6365770

PATIENT
  Age: 74 Year
  Sex: Female

DRUGS (3)
  1. VIBERZI [Suspect]
     Active Substance: ELUXADOLINE
     Indication: Irritable bowel syndrome
     Dosage: 75 MILLIGRAM?2 TABLETS?START DATE TEXT: 5-6 YEARS
     Route: 048
     Dates: end: 202505
  2. VIBERZI [Suspect]
     Active Substance: ELUXADOLINE
     Indication: Irritable bowel syndrome
     Dosage: ONE TABLET A DAY
     Route: 048
     Dates: start: 2025, end: 2025
  3. VIBERZI [Suspect]
     Active Substance: ELUXADOLINE
     Indication: Irritable bowel syndrome
     Dosage: 2 TABLETS
     Route: 048
     Dates: start: 2025

REACTIONS (5)
  - Cardiac disorder [Unknown]
  - Renal impairment [Unknown]
  - Dehydration [Unknown]
  - Constipation [Unknown]
  - Atrial fibrillation [Unknown]

NARRATIVE: CASE EVENT DATE: 20250101
